FAERS Safety Report 6725113-0 (Version None)
Quarter: 2010Q2

REPORT INFORMATION
  Report Type: 
  Country: None (occurrence: None)
  Receive Date: 20100514
  Receipt Date: 20100503
  Transmission Date: 20101027
  Serious: Yes (Hospitalization, Other)
  Sender: FDA-Public Use
  Company Number: US-BAYER-201014294NA

PATIENT
  Age: 19 Year
  Sex: Female
  Weight: 84 kg

DRUGS (3)
  1. YASMIN [Suspect]
     Indication: PREMENSTRUAL SYNDROME
     Route: 048
     Dates: start: 20060810, end: 20080220
  2. CETIRIZINE HCL [Concomitant]
  3. HOODIA [Concomitant]
     Indication: WEIGHT DECREASED
     Dates: start: 20100220

REACTIONS (6)
  - APHASIA [None]
  - APRAXIA [None]
  - CONVULSION [None]
  - FACIAL PALSY [None]
  - HYPOAESTHESIA [None]
  - ISCHAEMIC CEREBRAL INFARCTION [None]
